FAERS Safety Report 4810002-9 (Version None)
Quarter: 2005Q4

REPORT INFORMATION
  Report Type: 
  Country: None (occurrence: None)
  Receive Date: 20051024
  Receipt Date: 20051024
  Transmission Date: 20060501
  Serious: Yes (Disabling)
  Sender: FDA-Public Use
  Company Number: None

PATIENT

DRUGS (1)
  1. VIAGRA [Suspect]
     Indication: ERECTILE DYSFUNCTION
     Dosage: 2 TIMES A MONTH     PO
     Route: 048
     Dates: start: 20040905, end: 20050701

REACTIONS (3)
  - CEREBROVASCULAR ACCIDENT [None]
  - EYE DISORDER [None]
  - VISUAL ACUITY REDUCED [None]
